FAERS Safety Report 6206180-X (Version None)
Quarter: 2009Q2

REPORT INFORMATION
  Report Type: 
  Country: None (occurrence: None)
  Receive Date: 20090526
  Receipt Date: 20090511
  Transmission Date: 20091009
  Serious: Yes (Other)
  Sender: FDA-Public Use
  Company Number: 8046142

PATIENT
  Sex: Male

DRUGS (1)
  1. CIMZIA [Suspect]

REACTIONS (1)
  - NEOPLASM MALIGNANT [None]
